FAERS Safety Report 24540151 (Version 3)
Quarter: 2024Q4

REPORT INFORMATION
  Report Type: Spontaneous
  Country: JP (occurrence: JP)
  Receive Date: 20241023
  Receipt Date: 20241110
  Transmission Date: 20250115
  Serious: Yes (Other)
  Sender: JOHNSON AND JOHNSON
  Company Number: JP-JNJFOC-20241045860

PATIENT
  Age: 5 Decade
  Sex: Female

DRUGS (40)
  1. OPSUMIT [Suspect]
     Active Substance: MACITENTAN
     Indication: Pulmonary arterial hypertension
     Route: 048
     Dates: start: 20231024
  2. UPTRAVI [Suspect]
     Active Substance: SELEXIPAG
     Indication: Pulmonary arterial hypertension
     Route: 048
     Dates: start: 20230608, end: 20230614
  3. UPTRAVI [Suspect]
     Active Substance: SELEXIPAG
     Dosage: DOSE UNKNOWN, GRADUALLY INCREASED
     Route: 048
     Dates: start: 2023, end: 20231023
  4. UPTRAVI [Suspect]
     Active Substance: SELEXIPAG
     Route: 048
  5. UPTRAVI [Suspect]
     Active Substance: SELEXIPAG
     Route: 048
  6. UPTRAVI [Suspect]
     Active Substance: SELEXIPAG
     Route: 048
     Dates: start: 20230615, end: 20230621
  7. UPTRAVI [Suspect]
     Active Substance: SELEXIPAG
     Route: 048
     Dates: start: 20230622, end: 20230628
  8. UPTRAVI [Suspect]
     Active Substance: SELEXIPAG
     Route: 048
     Dates: start: 20230629, end: 20230705
  9. UPTRAVI [Suspect]
     Active Substance: SELEXIPAG
     Route: 048
     Dates: start: 20230706, end: 20230712
  10. UPTRAVI [Suspect]
     Active Substance: SELEXIPAG
     Route: 048
     Dates: start: 20230713, end: 20230719
  11. UPTRAVI [Suspect]
     Active Substance: SELEXIPAG
     Route: 048
     Dates: start: 20230720, end: 20230726
  12. UPTRAVI [Suspect]
     Active Substance: SELEXIPAG
     Route: 048
     Dates: start: 20230727, end: 20230801
  13. UPTRAVI [Suspect]
     Active Substance: SELEXIPAG
     Route: 048
     Dates: start: 20230802, end: 20230809
  14. UPTRAVI [Suspect]
     Active Substance: SELEXIPAG
     Route: 048
     Dates: start: 20231024, end: 202407
  15. AMBRISENTAN [Suspect]
     Active Substance: AMBRISENTAN
     Indication: Pulmonary arterial hypertension
     Dosage: DOSE UNKNOWN
     Route: 048
     Dates: start: 2013, end: 20140116
  16. AMBRISENTAN [Suspect]
     Active Substance: AMBRISENTAN
     Route: 048
     Dates: start: 20140117, end: 20231023
  17. TADALAFIL [Suspect]
     Active Substance: TADALAFIL
     Indication: Pulmonary arterial hypertension
     Route: 048
     Dates: start: 201107, end: 20110828
  18. TADALAFIL [Suspect]
     Active Substance: TADALAFIL
     Route: 048
     Dates: start: 20110829
  19. EPOPROSTENOL [Concomitant]
     Active Substance: EPOPROSTENOL
     Dosage: DOSE UNKNOWN
     Route: 042
     Dates: start: 201109
  20. EPOPROSTENOL [Concomitant]
     Active Substance: EPOPROSTENOL
     Dosage: DOSE UNKNOWN, GRADUALLY INCREASED
     Route: 042
  21. EPOPROSTENOL [Concomitant]
     Active Substance: EPOPROSTENOL
     Route: 042
  22. EPOPROSTENOL [Concomitant]
     Active Substance: EPOPROSTENOL
     Route: 042
     Dates: start: 20120531, end: 2013
  23. EPOPROSTENOL [Concomitant]
     Active Substance: EPOPROSTENOL
     Route: 042
     Dates: start: 20130510
  24. EPOPROSTENOL [Concomitant]
     Active Substance: EPOPROSTENOL
     Route: 042
     Dates: start: 20140117, end: 2015
  25. EPOPROSTENOL [Concomitant]
     Active Substance: EPOPROSTENOL
     Route: 042
     Dates: start: 20150826
  26. EPOPROSTENOL [Concomitant]
     Active Substance: EPOPROSTENOL
     Dosage: DOSE UNKNOWN, GRADUALLY DECREASED
     Route: 042
     Dates: end: 2023
  27. EPOPROSTENOL [Concomitant]
     Active Substance: EPOPROSTENOL
     Route: 042
     Dates: start: 20230608, end: 2023
  28. EPOPROSTENOL [Concomitant]
     Active Substance: EPOPROSTENOL
     Dosage: DOSE UNKNOWN
     Route: 042
     Dates: start: 202407
  29. EPOPROSTENOL [Concomitant]
     Active Substance: EPOPROSTENOL
     Route: 042
     Dates: start: 20110913, end: 2011
  30. EPOPROSTENOL [Concomitant]
     Active Substance: EPOPROSTENOL
     Route: 042
     Dates: start: 2011, end: 2011
  31. EPOPROSTENOL [Concomitant]
     Active Substance: EPOPROSTENOL
     Dosage: DOSE UNKNOWN, GRADUALLY DECREASED
     Route: 042
     Dates: start: 20221124, end: 2023
  32. EPOPROSTENOL [Concomitant]
     Active Substance: EPOPROSTENOL
     Route: 042
     Dates: start: 2023, end: 2023
  33. EPOPROSTENOL [Concomitant]
     Active Substance: EPOPROSTENOL
     Dosage: DOSE UNKNOWN, GRADUALLY DECREASED
     Route: 042
     Dates: start: 2023, end: 20230720
  34. EPOPROSTENOL [Concomitant]
     Active Substance: EPOPROSTENOL
     Route: 042
     Dates: start: 20240705, end: 2024
  35. EPOPROSTENOL [Concomitant]
     Active Substance: EPOPROSTENOL
     Dosage: DOSE UNKNOWN, GRADUALLY INCREASED
     Route: 042
     Dates: start: 2024, end: 2024
  36. EPOPROSTENOL [Concomitant]
     Active Substance: EPOPROSTENOL
     Route: 042
     Dates: start: 2024, end: 2024
  37. EPOPROSTENOL [Concomitant]
     Active Substance: EPOPROSTENOL
     Dosage: DOSE UNKNOWN, GRADUALLY INCREASED
     Route: 042
     Dates: start: 2024, end: 2024
  38. EPOPROSTENOL [Concomitant]
     Active Substance: EPOPROSTENOL
     Route: 042
     Dates: start: 2024
  39. OXYGEN [Concomitant]
     Active Substance: OXYGEN
     Dosage: DOSE UNKNOWN
     Dates: start: 2014
  40. OXYGEN [Concomitant]
     Active Substance: OXYGEN

REACTIONS (1)
  - Pulmonary arterial hypertension [Unknown]

NARRATIVE: CASE EVENT DATE: 20240515
